FAERS Safety Report 18708231 (Version 1)
Quarter: 2021Q1

REPORT INFORMATION
  Report Type: Report from Study
  Country: BR (occurrence: BR)
  Receive Date: 20210106
  Receipt Date: 20210106
  Transmission Date: 20210419
  Serious: Yes (Other)
  Sender: FDA-Public Use
  Company Number: NVSC2020BR346976

PATIENT
  Sex: Female

DRUGS (1)
  1. OMNITROPE [Suspect]
     Active Substance: SOMATROPIN
     Indication: GROWTH DISORDER
     Dosage: 1.2 MG (7 TIMES)
     Route: 058
     Dates: start: 20201228

REACTIONS (3)
  - Wrong technique in product usage process [Unknown]
  - Haemorrhage [Unknown]
  - Product storage error [Unknown]
